FAERS Safety Report 4430263-8 (Version None)
Quarter: 2004Q3

REPORT INFORMATION
  Report Type: 
  Country: None (occurrence: None)
  Receive Date: 20040820
  Receipt Date: 20040811
  Transmission Date: 20050211
  Serious: Yes (Hospitalization)
  Sender: FDA-Public Use
  Company Number: GB-GLAXOSMITHKLINE-B0342246A

PATIENT
  Age: 6 Year
  Sex: Male
  Weight: 20.25 kg

DRUGS (10)
  1. ZOVIRAX [Suspect]
     Indication: HERPETIC STOMATITIS
     Dosage: 200MG PER DAY
     Route: 048
     Dates: start: 20040527, end: 20040527
  2. VALPROIC ACID [Concomitant]
     Indication: EPILEPSY
     Dosage: 400MG PER DAY
     Route: 048
     Dates: start: 19970101
  3. LIORESAL [Concomitant]
     Dosage: 10MG PER DAY
     Route: 048
     Dates: start: 19970101
  4. KEPPRA [Concomitant]
     Indication: EPILEPSY
     Dosage: 125MG PER DAY
     Route: 048
     Dates: start: 20020101
  5. BECOTIDE [Concomitant]
     Indication: ASTHMA
     Dosage: 100MCG PER DAY
     Route: 055
     Dates: start: 20020101
  6. DIAZEPAM [Concomitant]
     Indication: EPILEPSY
     Dosage: 5MG PER DAY
     Route: 054
     Dates: start: 19970101
  7. HYOSCINE HBR HYT [Concomitant]
     Indication: SALIVARY HYPERSECRETION
     Route: 061
     Dates: start: 20030101
  8. ALBUTEROL SULFATE [Concomitant]
     Indication: ASTHMA
     Dosage: 100MCG PER DAY
     Dates: start: 20020101
  9. CEFACLOR [Concomitant]
     Indication: INFECTION
     Dosage: 250MG PER DAY
     Route: 048
     Dates: start: 20020101
  10. CALPOL [Concomitant]

REACTIONS (2)
  - OROPHARYNGEAL SWELLING [None]
  - SWOLLEN TONGUE [None]
